FAERS Safety Report 8920459 (Version 1)
Quarter: 2012Q4

REPORT INFORMATION
  Report Type: Report from Study
  Country: CA (occurrence: CA)
  Receive Date: 20121121
  Receipt Date: 20121121
  Transmission Date: 20130627
  Serious: Yes (Death)
  Sender: FDA-Public Use
  Company Number: CA-ROCHE-1156551

PATIENT
  Age: 89 Year
  Sex: Male

DRUGS (12)
  1. VEMURAFENIB [Suspect]
     Indication: METASTATIC MALIGNANT MELANOMA
     Route: 048
     Dates: start: 201207, end: 2012
  2. VEMURAFENIB [Suspect]
     Dosage: Dose reduced
     Route: 048
     Dates: start: 201209
  3. VITALUX [Concomitant]
     Route: 065
  4. AVAPRO [Concomitant]
     Route: 065
  5. GLYBURIDE [Concomitant]
     Route: 065
  6. NORVASC [Concomitant]
     Route: 065
  7. LIPITOR [Concomitant]
     Route: 065
  8. SYNTHROID [Concomitant]
     Route: 065
  9. AVODART [Concomitant]
     Route: 065
  10. DECADRON [Concomitant]
  11. METFORMIN [Concomitant]
     Route: 065
  12. OMEPRAZOLE [Concomitant]

REACTIONS (1)
  - Death [Fatal]
